FAERS Safety Report 15541474 (Version 2)
Quarter: 2020Q1

REPORT INFORMATION
  Report Type: Spontaneous
  Country: US (occurrence: US)
  Receive Date: 20181023
  Receipt Date: 20200130
  Transmission Date: 20200409
  Serious: Yes (Other)
  Sender: FDA-Public Use
  Company Number: US-SA-2018SA291165

PATIENT
  Age: 43 Year
  Sex: Female
  Weight: 63.5 kg

DRUGS (9)
  1. HERCEPTIN [Concomitant]
     Active Substance: TRASTUZUMAB
  2. TYLENOL [Concomitant]
     Active Substance: ACETAMINOPHEN
  3. DOCETAXEL. [Suspect]
     Active Substance: DOCETAXEL
     Dosage: UNK, Q3W
     Route: 042
     Dates: start: 20080613, end: 20080613
  4. TRAMADOL. [Concomitant]
     Active Substance: TRAMADOL
  5. NEOSAR [Concomitant]
     Active Substance: CYCLOPHOSPHAMIDE
  6. PROMETHAZINE [Concomitant]
     Active Substance: PROMETHAZINE HYDROCHLORIDE
     Dosage: UNK UNK, PRN
     Route: 048
  7. LORAZEPAM. [Concomitant]
     Active Substance: LORAZEPAM
  8. MEDIZINE [Concomitant]
     Dosage: 25 MG, TID
  9. DOCETAXEL. [Suspect]
     Active Substance: DOCETAXEL
     Dosage: UNK
     Route: 042
     Dates: start: 20080502, end: 20080502

REACTIONS (2)
  - Alopecia [Recovering/Resolving]
  - Psychological trauma [Unknown]
